FAERS Safety Report 6992940-4 (Version None)
Quarter: 2010Q3

REPORT INFORMATION
  Report Type: 
  Country: None (occurrence: None)
  Receive Date: 20100916
  Receipt Date: 20100916
  Transmission Date: 20110219
  Serious: Yes (Other)
  Sender: FDA-Public Use
  Company Number: None

PATIENT
  Age: 74 Year
  Sex: Female
  Weight: 88.905 kg

DRUGS (1)
  1. DILTIAZEM CR 240 MG MYLAN [Suspect]
     Indication: HYPERTENSION
     Dosage: 1 CAPSULE -240 MG- ONCE DAILY PO
     Route: 048

REACTIONS (2)
  - LICHENOID KERATOSIS [None]
  - RASH GENERALISED [None]
